FAERS Safety Report 15620006 (Version 2)
Quarter: 2018Q4

REPORT INFORMATION
  Report Type: Spontaneous
  Country: CA (occurrence: CA)
  Receive Date: 20181115
  Receipt Date: 20181212
  Transmission Date: 20190205
  Serious: Yes (Other)
  Sender: FDA-Public Use
  Company Number: CA-APOTEX-2018AP024160

PATIENT
  Sex: Female

DRUGS (1)
  1. OMEPRAZOLE. [Suspect]
     Active Substance: OMEPRAZOLE
     Indication: PRODUCT USED FOR UNKNOWN INDICATION
     Dosage: ONCE A DAY WITH FOOD
     Route: 065
     Dates: start: 201810

REACTIONS (6)
  - Deafness [Unknown]
  - Vision blurred [Unknown]
  - Drug effect incomplete [Unknown]
  - Oropharyngeal pain [Unknown]
  - Product substitution issue [Unknown]
  - Influenza [Unknown]

NARRATIVE: CASE EVENT DATE: 201810
